FAERS Safety Report 21133906 (Version 1)
Quarter: 2022Q3

REPORT INFORMATION
  Report Type: Spontaneous
  Country: US (occurrence: US)
  Receive Date: 20220726
  Receipt Date: 20220726
  Transmission Date: 20221027
  Serious: No
  Sender: FDA-Public Use
  Company Number: US-OYSTER POINT PHARMA, INC.-2022OYS00477

PATIENT
  Sex: Female

DRUGS (10)
  1. TYRVAYA [Suspect]
     Active Substance: VARENICLINE TARTRATE
     Indication: Dry eye
     Dosage: 1 SPRAY, 2X/DAY
     Route: 045
     Dates: start: 20220131, end: 202203
  2. KEPPRA [Concomitant]
     Active Substance: LEVETIRACETAM
  3. LEVOTHYROXINE SODIUM [Concomitant]
     Active Substance: LEVOTHYROXINE SODIUM
  4. CARTIA XT [Concomitant]
     Active Substance: DILTIAZEM HYDROCHLORIDE
  5. ACYCLOVIR [Concomitant]
     Active Substance: ACYCLOVIR
  6. VITAMIN D3 AND B COMPLEX [Concomitant]
  7. BIOTIN [Concomitant]
     Active Substance: BIOTIN
  8. CALCIUM [Concomitant]
     Active Substance: CALCIUM
  9. SINGULAIR [Concomitant]
     Active Substance: MONTELUKAST SODIUM
  10. ^PIRXICAM^ [Concomitant]

REACTIONS (1)
  - Epistaxis [Recovered/Resolved]

NARRATIVE: CASE EVENT DATE: 20220201
